FAERS Safety Report 23850052 (Version 1)
Quarter: 2024Q2

REPORT INFORMATION
  Report Type: Spontaneous
  Country: US (occurrence: None)
  Receive Date: 20240513
  Receipt Date: 20240513
  Transmission Date: 20240715
  Serious: Yes (Hospitalization)
  Sender: FDA-Public Use
  Company Number: None

PATIENT
  Age: 59 Year
  Sex: Male

DRUGS (1)
  1. TROPICAMIDE [Suspect]
     Active Substance: TROPICAMIDE
     Indication: Ophthalmological examination
     Dosage: 2 DROPS ONCE EYE ?
     Route: 031
     Dates: start: 20231205, end: 20231205

REACTIONS (2)
  - Conjunctival oedema [None]
  - Eye pruritus [None]

NARRATIVE: CASE EVENT DATE: 20231205
